FAERS Safety Report 7115566-0 (Version None)
Quarter: 2010Q4

REPORT INFORMATION
  Report Type: 
  Country: None (occurrence: None)
  Receive Date: 20101122
  Receipt Date: 20101116
  Transmission Date: 20110411
  Serious: Yes (Hospitalization)
  Sender: FDA-Public Use
  Company Number: NL-MEDIMMUNE-MEDI-0011739

PATIENT
  Sex: Female
  Weight: 4.14 kg

DRUGS (4)
  1. SYNAGIS [Suspect]
     Route: 051
     Dates: start: 20101005, end: 20101005
  2. SYNAGIS [Suspect]
     Route: 051
     Dates: start: 20101102, end: 20101102
  3. LACTULOSE [Concomitant]
     Indication: GROWTH RETARDATION
     Dates: start: 20100101
  4. FERRO [Concomitant]
     Indication: GROWTH RETARDATION
     Dates: start: 20100101

REACTIONS (3)
  - COUGH [None]
  - DEHYDRATION [None]
  - DYSPNOEA [None]
